FAERS Safety Report 11256412 (Version 7)
Quarter: 2015Q4

REPORT INFORMATION
  Report Type: Report from Study
  Country: DE (occurrence: DE)
  Receive Date: 20150709
  Receipt Date: 20151231
  Transmission Date: 20160304
  Serious: Yes (Hospitalization, Other)
  Sender: FDA-Public Use
  Company Number: DE-JNJFOC-20150623173

PATIENT
  Age: 58 Year
  Sex: Male
  Weight: 111 kg

DRUGS (3)
  1. USTEKINUMAB [Suspect]
     Active Substance: USTEKINUMAB
     Indication: PSORIATIC ARTHROPATHY
     Route: 058
     Dates: start: 20150602, end: 20150602
  2. MTX [Suspect]
     Active Substance: METHOTREXATE SODIUM
     Indication: PRODUCT USED FOR UNKNOWN INDICATION
     Route: 065
     Dates: start: 20150602, end: 20150630
  3. ALLOPURINOL. [Concomitant]
     Active Substance: ALLOPURINOL
     Route: 065
     Dates: start: 20150721

REACTIONS (9)
  - Chest pain [Recovered/Resolved]
  - Prostatic specific antigen increased [Recovered/Resolved]
  - Thrombosis [Not Recovered/Not Resolved]
  - Abdominal tenderness [Recovered/Resolved]
  - Joint swelling [Recovered/Resolved]
  - General physical health deterioration [Recovered/Resolved]
  - Fibrin D dimer increased [Recovered/Resolved]
  - Hyperhidrosis [Recovered/Resolved]
  - Arthralgia [Recovered/Resolved]

NARRATIVE: CASE EVENT DATE: 20150615
